FAERS Safety Report 7443358-1 (Version None)
Quarter: 2011Q2

REPORT INFORMATION
  Report Type: 
  Country: None (occurrence: None)
  Receive Date: 20110428
  Receipt Date: 20110415
  Transmission Date: 20111010
  Serious: Yes (Hospitalization, Disabling, Other)
  Sender: FDA-Public Use
  Company Number: PHEH2006US00793

PATIENT
  Sex: Female

DRUGS (19)
  1. FLAGYL [Concomitant]
     Dosage: 500MG, TID
     Route: 048
  2. ATIVAN [Concomitant]
     Dosage: 0.5MG,
     Route: 048
  3. MEGESTROL ACETATE [Concomitant]
     Dosage: 400MG, DAILY
     Route: 048
  4. PREDNISONE [Concomitant]
     Dosage: 10MG, DAILY
     Route: 048
  5. POTASSIUM [Concomitant]
     Dosage: 40MG, DAILY
     Route: 048
  6. FLUOROURACIL [Concomitant]
     Dosage: 795 MG, UNK
  7. ADRIAMYCIN + 5-FU [Concomitant]
     Dosage: UNK
     Dates: start: 19930101
  8. HEP-LOCK [Concomitant]
     Dosage: UNK
  9. DECADRON [Concomitant]
     Dosage: 20 MG, UNK
     Dates: start: 19930101
  10. FASLODEX [Concomitant]
  11. PROTONIX [Concomitant]
     Dosage: 40MG, DAILY
     Route: 048
  12. NORMAL SALINE [Concomitant]
  13. XELODA [Concomitant]
     Dosage: UNK
  14. COUMADIN [Concomitant]
     Dosage: 1 MG, DAILY
     Route: 048
  15. MULTI-VITAMINS [Concomitant]
  16. POTASSIUM PHOSPHATES [Concomitant]
     Dosage: 250MG, DAILY
     Route: 048
  17. AREDIA [Suspect]
     Indication: METASTASES TO BONE
     Dosage: 90 MG, QMO
     Dates: start: 19990101, end: 20030101
  18. ZOMETA [Suspect]
     Indication: METASTASES TO BONE
     Dosage: 4 MG, QMO
     Dates: start: 20030101, end: 20050501
  19. ZOFRAN [Concomitant]
     Dosage: 8MG,
     Route: 048

REACTIONS (56)
  - LIFE EXPECTANCY SHORTENED [None]
  - PRIMARY SEQUESTRUM [None]
  - WEIGHT DECREASED [None]
  - COSTOCHONDRITIS [None]
  - DYSPNOEA [None]
  - NAUSEA [None]
  - ASTHENIA [None]
  - FATIGUE [None]
  - FACIAL PAIN [None]
  - HEADACHE [None]
  - PAIN IN JAW [None]
  - PALMAR-PLANTAR ERYTHRODYSAESTHESIA SYNDROME [None]
  - OROPHARYNGEAL PAIN [None]
  - ABDOMINAL PAIN [None]
  - PROTEIN TOTAL INCREASED [None]
  - HIATUS HERNIA [None]
  - BONE DISORDER [None]
  - EMOTIONAL DISTRESS [None]
  - HYPOAESTHESIA ORAL [None]
  - WHEEZING [None]
  - COUGH [None]
  - LUNG NEOPLASM [None]
  - WHITE BLOOD CELL COUNT INCREASED [None]
  - PLATELET COUNT INCREASED [None]
  - PAIN [None]
  - OSTEOLYSIS [None]
  - BREAST CANCER METASTATIC [None]
  - PYREXIA [None]
  - CHEST PAIN [None]
  - PLEURAL EFFUSION [None]
  - BLOOD ALKALINE PHOSPHATASE INCREASED [None]
  - MONOCYTE PERCENTAGE INCREASED [None]
  - VISION BLURRED [None]
  - EATING DISORDER [None]
  - OSTEITIS [None]
  - FEELING ABNORMAL [None]
  - NEUTROPHIL COUNT INCREASED [None]
  - GINGIVAL INFECTION [None]
  - INFECTION [None]
  - SPINAL COMPRESSION FRACTURE [None]
  - BLOOD BILIRUBIN INCREASED [None]
  - ASPARTATE AMINOTRANSFERASE INCREASED [None]
  - LYMPHOCYTE PERCENTAGE DECREASED [None]
  - SPINAL OSTEOARTHRITIS [None]
  - OSTEONECROSIS OF JAW [None]
  - NECK PAIN [None]
  - METASTASES TO SPINE [None]
  - BLOOD UREA INCREASED [None]
  - BLOOD CREATINE PHOSPHOKINASE DECREASED [None]
  - DEFORMITY [None]
  - PAIN IN EXTREMITY [None]
  - DYSPHAGIA [None]
  - ATELECTASIS [None]
  - PLEURAL FIBROSIS [None]
  - COLONIC OBSTRUCTION [None]
  - SWELLING [None]
